FAERS Safety Report 6700720-X (Version None)
Quarter: 2010Q2

REPORT INFORMATION
  Report Type: 
  Country: None (occurrence: None)
  Receive Date: 20100428
  Receipt Date: 20100420
  Transmission Date: 20101027
  Serious: Yes (Other)
  Sender: FDA-Public Use
  Company Number: JP-MERCK-1004USA03809

PATIENT
  Age: 53 Year
  Sex: Male

DRUGS (10)
  1. JANUVIA [Suspect]
     Indication: DIABETES MELLITUS
     Route: 048
     Dates: start: 20100125, end: 20100408
  2. AMARYL [Concomitant]
     Route: 048
  3. ALDACTONE [Concomitant]
     Route: 048
  4. BAYNAS [Concomitant]
     Route: 048
  5. LASIX [Concomitant]
     Route: 065
  6. TAKEPRON [Concomitant]
     Route: 065
  7. ACTOS [Concomitant]
     Route: 048
  8. SIGMART [Concomitant]
     Route: 065
  9. DIOVAN [Concomitant]
     Route: 048
  10. WARFARIN POTASSIUM [Concomitant]
     Route: 048

REACTIONS (1)
  - BLOOD AMYLASE INCREASED [None]
